FAERS Safety Report 14944139 (Version 1)
Quarter: 2018Q2

REPORT INFORMATION
  Report Type: Spontaneous
  Country: US (occurrence: US)
  Receive Date: 20180528
  Receipt Date: 20180528
  Transmission Date: 20180711
  Serious: Yes (Other)
  Sender: FDA-Public Use
  Company Number: US-ELI_LILLY_AND_COMPANY-US201805008665

PATIENT
  Age: 37 Year
  Sex: Male

DRUGS (4)
  1. WELLBUTRIN [Suspect]
     Active Substance: BUPROPION HYDROCHLORIDE
     Indication: EX-TOBACCO USER
     Dosage: UNK UNK, UNKNOWN
     Route: 048
     Dates: start: 20010725, end: 20010904
  2. ALCOHOL. [Concomitant]
     Active Substance: ALCOHOL
     Dosage: UNK UNK, UNKNOWN
     Route: 065
  3. ZYPREXA [Suspect]
     Active Substance: OLANZAPINE
     Indication: PSYCHOTIC DISORDER
     Dosage: UNK UNK, UNKNOWN
     Route: 065
     Dates: start: 20010916
  4. DEPAKOTE [Suspect]
     Active Substance: DIVALPROEX SODIUM
     Indication: BIPOLAR DISORDER
     Dosage: UNK UNK, UNKNOWN
     Route: 065
     Dates: start: 20010907

REACTIONS (1)
  - Mania [Unknown]

NARRATIVE: CASE EVENT DATE: 20010903
